FAERS Safety Report 7394693-7 (Version None)
Quarter: 2011Q2

REPORT INFORMATION
  Report Type: 
  Country: None (occurrence: None)
  Receive Date: 20110405
  Receipt Date: 20110323
  Transmission Date: 20111010
  Serious: Yes (Death, Other)
  Sender: FDA-Public Use
  Company Number: JP-JNJFOC-20110300946

PATIENT
  Sex: Male

DRUGS (19)
  1. CRAVIT [Suspect]
     Indication: PRODUCTIVE COUGH
     Route: 048
     Dates: start: 20110210, end: 20110211
  2. CALTAN [Concomitant]
     Indication: HYPERPHOSPHATAEMIA
     Route: 048
  3. RISUMIC [Concomitant]
     Indication: HYPOTENSION
     Route: 048
  4. MUCOSTA [Concomitant]
     Indication: PRODUCTIVE COUGH
     Route: 048
  5. LAC B [Concomitant]
     Indication: PROPHYLAXIS AGAINST DIARRHOEA
     Route: 048
  6. ASPIRIN [Concomitant]
     Indication: CEREBRAL INFARCTION
     Route: 048
  7. ARTIST [Concomitant]
     Indication: CARDIAC FAILURE
     Route: 048
  8. METHYCOBAL [Concomitant]
     Indication: CEREBRAL INFARCTION
     Route: 048
  9. CRAVIT [Suspect]
     Indication: PYREXIA
     Route: 048
     Dates: start: 20110210, end: 20110211
  10. MUCOSTA [Concomitant]
     Indication: PYREXIA
     Route: 048
  11. ONEALFA [Concomitant]
     Indication: RENAL OSTEODYSTROPHY
     Route: 048
  12. DOPS [Concomitant]
     Indication: PROCEDURAL HYPOTENSION
     Route: 048
  13. OMEPRAZOLE [Concomitant]
     Indication: REFLUX OESOPHAGITIS
     Route: 048
  14. WARFARIN [Concomitant]
     Indication: CEREBRAL INFARCTION
     Route: 048
  15. ASPARA K [Concomitant]
     Indication: HYPOKALAEMIA
     Route: 048
  16. LENDORMIN [Concomitant]
     Indication: INSOMNIA
     Route: 048
  17. DOPS [Concomitant]
     Indication: HYPOTENSION
     Route: 048
  18. MUCOSTA [Concomitant]
     Indication: WHEEZING
     Route: 048
  19. RISUMIC [Concomitant]
     Indication: PROCEDURAL HYPOTENSION
     Route: 048

REACTIONS (4)
  - BLOOD POTASSIUM INCREASED [None]
  - HEPATIC FUNCTION ABNORMAL [None]
  - BLOOD CREATINE PHOSPHOKINASE INCREASED [None]
  - BLOOD IMMUNOGLOBULIN E INCREASED [None]
